FAERS Safety Report 13848279 (Version 1)
Quarter: 2017Q3

REPORT INFORMATION
  Report Type: Spontaneous
  Country: US (occurrence: US)
  Receive Date: 20170809
  Receipt Date: 20170809
  Transmission Date: 20171127
  Serious: No
  Sender: FDA-Public Use
  Company Number: US-PURDUE-USA-2017-0139292

PATIENT
  Age: 30 Year
  Sex: Female

DRUGS (2)
  1. BUTRANS [Suspect]
     Active Substance: BUPRENORPHINE
     Indication: ARTHRITIS
     Dosage: 7.5 MCG/HR, WEEKLY
     Route: 062
     Dates: start: 20170602
  2. BUTRANS [Suspect]
     Active Substance: BUPRENORPHINE
     Indication: FIBROMYALGIA
     Dosage: 10 MCG/HR, WEEKLY
     Route: 062
     Dates: start: 20170525, end: 20170602

REACTIONS (5)
  - Pain [Not Recovered/Not Resolved]
  - Drug ineffective [Unknown]
  - Somnolence [Recovered/Resolved]
  - Product adhesion issue [Unknown]
  - Application site irritation [Not Recovered/Not Resolved]

NARRATIVE: CASE EVENT DATE: 20170525
